FAERS Safety Report 18441626 (Version 1)
Quarter: 2020Q4

REPORT INFORMATION
  Report Type: Spontaneous
  Country: DE (occurrence: DE)
  Receive Date: 20201029
  Receipt Date: 20201029
  Transmission Date: 20210114
  Serious: Yes (Hospitalization)
  Sender: FDA-Public Use
  Company Number: DE-TEVA-2020-DE-1841779

PATIENT
  Age: 79 Year
  Sex: Male

DRUGS (5)
  1. ASS 100MG [Concomitant]
     Active Substance: ASPIRIN
     Dosage: 100 MILLIGRAM DAILY; 1X DAILY
     Route: 048
  2. RAMIPRIL 2.5MG [Suspect]
     Active Substance: RAMIPRIL
     Indication: HYPERTENSION
     Dosage: 2.5 MILLIGRAM DAILY; 1X DAILY, 2.5MG
     Route: 048
     Dates: start: 20200925, end: 20200927
  3. TRIAMTEREN/HCT 50/25MG [Concomitant]
     Dosage: 4 DOSAGE FORMS DAILY; TWICE A DAY
     Route: 048
  4. MAGNESIUM 400MG [Concomitant]
     Active Substance: MAGNESIUM
     Dosage: 400 MILLIGRAM DAILY; 1X DAILY
     Route: 048
  5. BISOPROLOL 2.5MG [Concomitant]
     Active Substance: BISOPROLOL
     Dosage: TWICE A DAY, UNIT DOSE: 5MG
     Route: 048

REACTIONS (2)
  - Swollen tongue [Recovering/Resolving]
  - Adverse reaction [Recovering/Resolving]

NARRATIVE: CASE EVENT DATE: 20200927
